FAERS Safety Report 5158303-1 (Version None)
Quarter: 2006Q4

REPORT INFORMATION
  Report Type: 
  Country: None (occurrence: None)
  Receive Date: 20061117
  Receipt Date: 20061031
  Transmission Date: 20070319
  Serious: Yes (Death)
  Sender: FDA-Public Use
  Company Number: 232021

PATIENT
  Age: 70 Year
  Sex: Male

DRUGS (3)
  1. RITUXIMAB (RITUXIMAB) CONC FOR SOLUTION FOR INFUSION [Suspect]
     Indication: CHRONIC LYMPHOCYTIC LEUKAEMIA
     Dosage: 960 MG, QD, INTRAVENOUS
     Route: 042
     Dates: start: 20060508
  2. FLUDARABINE PHOSPHATE [Suspect]
     Indication: CHRONIC LYMPHOCYTIC LEUKAEMIA
     Dosage: 64 MG, Q3D, INTRAVENOUS
     Route: 042
     Dates: start: 20060509
  3. CYCLOPHOSPHAMIDE [Suspect]
     Indication: CHRONIC LYMPHOCYTIC LEUKAEMIA
     Dosage: 642 MG, Q3D, INTRAVENOUS
     Route: 042
     Dates: start: 20060509

REACTIONS (7)
  - FUNGAL SEPSIS [None]
  - HAEMOPTYSIS [None]
  - LUNG CONSOLIDATION [None]
  - MULTI-ORGAN FAILURE [None]
  - PARANEOPLASTIC PEMPHIGUS [None]
  - PNEUMONIA [None]
  - RESPIRATORY FAILURE [None]
